FAERS Safety Report 17292762 (Version 1)
Quarter: 2020Q1

REPORT INFORMATION
  Report Type: Spontaneous
  Country: US (occurrence: US)
  Receive Date: 20191231
  Receipt Date: 20191231
  Transmission Date: 20200409
  Serious: Yes (Hospitalization)
  Sender: FDA-Public Use
  Company Number: None

PATIENT
  Age: 22 Month
  Sex: Female
  Weight: 13.6 kg

DRUGS (5)
  1. CYTARABINE. [Suspect]
     Active Substance: CYTARABINE
     Dates: end: 20191122
  2. ONCASPAR [Suspect]
     Active Substance: PEGASPARGASE
     Dates: end: 20191126
  3. DEXAMETHASONE. [Suspect]
     Active Substance: DEXAMETHASONE
     Dates: end: 20191204
  4. VINCRISTINE [Suspect]
     Active Substance: VINCRISTINE
     Dates: end: 20191202
  5. METHOTREXATE. [Suspect]
     Active Substance: METHOTREXATE
     Dates: end: 20191202

REACTIONS (4)
  - Anxiety [None]
  - Weight bearing difficulty [None]
  - Human rhinovirus test positive [None]
  - Pyrexia [None]

NARRATIVE: CASE EVENT DATE: 20191204
